FAERS Safety Report 8208691-4 (Version None)
Quarter: 2012Q1

REPORT INFORMATION
  Report Type: 
  Country: None (occurrence: None)
  Receive Date: 20120314
  Receipt Date: 20120312
  Transmission Date: 20120608
  Serious: Yes (Hospitalization, Other)
  Sender: FDA-Public Use
  Company Number: US-PFIZER INC-2012065350

PATIENT
  Sex: Female
  Weight: 55 kg

DRUGS (3)
  1. LYRICA [Suspect]
     Dosage: 300 MG, 2X/DAY
     Route: 048
  2. LYRICA [Suspect]
     Indication: MIGRAINE
     Dosage: 50 MG, UNK
     Route: 048
     Dates: start: 20050501
  3. OMEPRAZOLE [Concomitant]
     Indication: ULCER
     Dosage: 20 MG, 2X/DAY

REACTIONS (3)
  - PNEUMONIA [None]
  - MIGRAINE [None]
  - ACTIVITIES OF DAILY LIVING IMPAIRED [None]
